FAERS Safety Report 12683162 (Version 1)
Quarter: 2016Q3

REPORT INFORMATION
  Report Type: Spontaneous
  Country: US (occurrence: None)
  Receive Date: 20160824
  Receipt Date: 20160824
  Transmission Date: 20161109
  Serious: Yes (Disabling)
  Sender: FDA-Public Use
  Company Number: None

PATIENT
  Age: 54 Year
  Sex: Female
  Weight: 60.33 kg

DRUGS (11)
  1. IBUPROFEN. [Concomitant]
     Active Substance: IBUPROFEN
  2. VITAMIN B12 [Concomitant]
     Active Substance: CYANOCOBALAMIN
  3. IRON [Concomitant]
     Active Substance: IRON
  4. MAGNESIUM [Concomitant]
     Active Substance: MAGNESIUM
  5. WALGREENS TRIPLE ANTIBIOTIC [Suspect]
     Active Substance: BACITRACIN ZINC\NEOMYCIN SULFATE\POLYMYXIN B SULFATE
     Indication: WOUND
     Dosage: AS NEEDED APPLIED TO A SURFACE, USUALLY THE SKIN
     Route: 061
  6. RIBOFLAVIN [Concomitant]
     Active Substance: RIBOFLAVIN
  7. ZINC [Concomitant]
     Active Substance: ZINC\ZINC CHLORIDE
  8. VITAMIN D [Concomitant]
     Active Substance: CHOLECALCIFEROL
  9. BIOTIN [Concomitant]
     Active Substance: BIOTIN
  10. VITAMIN C [Concomitant]
     Active Substance: ASCORBIC ACID
  11. POMEGRANATE JUICE [Concomitant]
     Active Substance: POMEGRANATE

REACTIONS (3)
  - Toxicity to various agents [None]
  - Ototoxicity [None]
  - Deafness neurosensory [None]

NARRATIVE: CASE EVENT DATE: 20160822
